FAERS Safety Report 6889555-5 (Version None)
Quarter: 2010Q3

REPORT INFORMATION
  Report Type: 
  Country: None (occurrence: None)
  Receive Date: 20100730
  Receipt Date: 20080321
  Transmission Date: 20110219
  Serious: No
  Sender: FDA-Public Use
  Company Number: US-PFIZER INC-2008025495

PATIENT
  Sex: Female

DRUGS (3)
  1. LIPITOR [Suspect]
  2. FUROSEMIDE [Concomitant]
  3. OMEPRAZOLE [Concomitant]

REACTIONS (2)
  - INTENTIONAL DRUG MISUSE [None]
  - SUNBURN [None]
